FAERS Safety Report 9725382 (Version 1)
Quarter: 2013Q4

REPORT INFORMATION
  Report Type: Spontaneous
  Country: US (occurrence: None)
  Receive Date: 20131202
  Receipt Date: 20131202
  Transmission Date: 20140711
  Serious: Yes (Other)
  Sender: FDA-Public Use
  Company Number: None

PATIENT
  Age: 50 Year
  Sex: Male
  Weight: 102.06 kg

DRUGS (2)
  1. NEOMYCIN, POLYMIXIN, HYDROCORTISONE [Suspect]
     Indication: EAR INFECTION
     Dosage: INTO THE EAR
     Dates: start: 20131014, end: 20131021
  2. NEOMYCIN, POLYMIXIN, HYDROCORTISONE [Suspect]
     Indication: NEURALGIA
     Dosage: INTO THE EAR
     Dates: start: 20131014, end: 20131021

REACTIONS (4)
  - Deafness [None]
  - Chemical injury [None]
  - Skin exfoliation [None]
  - Tinnitus [None]
